FAERS Safety Report 12118746 (Version 1)
Quarter: 2016Q1

REPORT INFORMATION
  Report Type: Spontaneous
  Country: US (occurrence: US)
  Receive Date: 20160226
  Receipt Date: 20160226
  Transmission Date: 20160526
  Serious: No
  Sender: FDA-Public Use
  Company Number: US-FRI-1000080401

PATIENT
  Age: 54 Year
  Sex: Female

DRUGS (1)
  1. VIIBRYD [Suspect]
     Active Substance: VILAZODONE HYDROCHLORIDE
     Indication: DEPRESSION
     Dosage: 10 MG
     Route: 048
     Dates: start: 20151016, end: 20151020

REACTIONS (6)
  - Nausea [Recovered/Resolved]
  - Insomnia [Recovered/Resolved]
  - Fatigue [Unknown]
  - Dizziness [Unknown]
  - Bladder irritation [Recovered/Resolved]
  - Dry mouth [Unknown]

NARRATIVE: CASE EVENT DATE: 20151016
